FAERS Safety Report 8066110-5 (Version None)
Quarter: 2011Q4

REPORT INFORMATION
  Report Type: 
  Country: None (occurrence: None)
  Receive Date: 20111221
  Receipt Date: 20110315
  Transmission Date: 20120403
  Serious: Yes (Death)
  Sender: FDA-Public Use
  Company Number: PHHY2010US87337

PATIENT
  Age: 83 Year
  Sex: Male
  Weight: 102 kg

DRUGS (1)
  1. EXJADE [Suspect]
     Indication: ACUTE MYELOID LEUKAEMIA
     Dosage: 2000 MG, QD, ORAL
     Route: 048
     Dates: start: 20091215, end: 20100811

REACTIONS (3)
  - MYELODYSPLASTIC SYNDROME [None]
  - ACUTE LEUKAEMIA [None]
  - NEOPLASM MALIGNANT [None]
